FAERS Safety Report 5952651-0 (Version None)
Quarter: 2008Q4

REPORT INFORMATION
  Report Type: 
  Country: None (occurrence: None)
  Receive Date: 20081031
  Receipt Date: 20080807
  Transmission Date: 20090506
  Serious: Yes (Hospitalization)
  Sender: FDA-Public Use
  Company Number: 031881

PATIENT
  Age: 32 Year
  Sex: Female
  Weight: 113.4 kg

DRUGS (1)
  1. SEASONALE [Suspect]
     Indication: ORAL CONTRACEPTION
     Dosage: 1 TABLET QD, ORAL
     Route: 048
     Dates: start: 20080601, end: 20080701

REACTIONS (2)
  - DYSPNOEA [None]
  - PULMONARY EMBOLISM [None]
